FAERS Safety Report 5400344-0 (Version None)
Quarter: 2007Q3

REPORT INFORMATION
  Report Type: 
  Country: None (occurrence: None)
  Receive Date: 20070730
  Receipt Date: 20070723
  Transmission Date: 20080115
  Serious: Yes (Other)
  Sender: FDA-Public Use
  Company Number: A0665831A

PATIENT
  Age: 79 Year
  Sex: Male
  Weight: 73.2 kg

DRUGS (12)
  1. ROSIGLITAZONE [Suspect]
     Dosage: 4MG TWICE PER DAY
     Route: 048
     Dates: start: 20030212, end: 20070607
  2. ATENOLOL [Concomitant]
     Dosage: 12.5MG PER DAY
     Route: 048
  3. FOSINOPRIL SODIUM [Concomitant]
     Dosage: 5MG PER DAY
     Route: 048
  4. LOVASTATIN [Concomitant]
     Dosage: 40MG AT NIGHT
     Route: 048
  5. NITROGLYCERIN [Concomitant]
     Dosage: .4MG AS REQUIRED
     Route: 060
  6. MULTI-VITAMIN [Concomitant]
  7. DOCUSATE SODIUM [Concomitant]
  8. ZINC [Concomitant]
     Dosage: 50MG PER DAY
  9. GLIMEPIRIDE [Concomitant]
     Dosage: 4MG TWICE PER DAY
     Route: 048
  10. GLUCOSAMINE [Concomitant]
     Dosage: 1500MG PER DAY
  11. ASPIRIN [Concomitant]
     Dosage: 81MG THREE TIMES PER WEEK
  12. TRIAMCINOLONE [Concomitant]

REACTIONS (2)
  - ANGINA PECTORIS [None]
  - OEDEMA PERIPHERAL [None]
